FAERS Safety Report 23080439 (Version 1)
Quarter: 2023Q4

REPORT INFORMATION
  Report Type: Spontaneous
  Country: FR (occurrence: FR)
  Receive Date: 20231018
  Receipt Date: 20231018
  Transmission Date: 20240109
  Serious: Yes (Death)
  Sender: FDA-Public Use
  Company Number: None

PATIENT

DRUGS (3)
  1. MENOPUR [Suspect]
     Active Substance: FOLLITROPIN\LUTEINIZING HORMONE
     Indication: Reproductive hormone
     Route: 042
     Dates: start: 20220601
  2. SYNAREL [Suspect]
     Active Substance: NAFARELIN ACETATE
     Indication: Reproductive hormone
     Route: 055
     Dates: start: 20220601
  3. CHORIOGONADOTROPIN ALFA [Suspect]
     Active Substance: CHORIOGONADOTROPIN ALFA
     Indication: Reproductive hormone
     Route: 042
     Dates: start: 20220601

REACTIONS (3)
  - Metastasis [Fatal]
  - Adenocarcinoma of colon [Fatal]
  - Incorrect route of product administration [Unknown]

NARRATIVE: CASE EVENT DATE: 20220601
